FAERS Safety Report 12670737 (Version 1)
Quarter: 2016Q3

REPORT INFORMATION
  Report Type: Spontaneous
  Country: US (occurrence: US)
  Receive Date: 20160822
  Receipt Date: 20160822
  Transmission Date: 20161109
  Serious: No
  Sender: FDA-Public Use
  Company Number: US-JAZZ-2016-US-005936

PATIENT
  Sex: Female

DRUGS (27)
  1. XYREM [Suspect]
     Active Substance: SODIUM OXYBATE
     Dosage: 3 G, BID
     Route: 048
     Dates: start: 201006
  2. EPIPEN [Concomitant]
     Active Substance: EPINEPHRINE
  3. CLIMARA [Concomitant]
     Active Substance: ESTRADIOL
  4. PERCOCET [Concomitant]
     Active Substance: ACETAMINOPHEN\OXYCODONE HYDROCHLORIDE
  5. WELLBUTRIN [Concomitant]
     Active Substance: BUPROPION HYDROCHLORIDE
  6. PREDNISONE. [Concomitant]
     Active Substance: PREDNISONE
  7. RITALIN [Concomitant]
     Active Substance: METHYLPHENIDATE HYDROCHLORIDE
  8. MODAFINIL. [Concomitant]
     Active Substance: MODAFINIL
  9. ALBUTEROL SULFATE. [Concomitant]
     Active Substance: ALBUTEROL SULFATE
  10. FLONASE [Concomitant]
     Active Substance: FLUTICASONE PROPIONATE
  11. NABUMETONE. [Concomitant]
     Active Substance: NABUMETONE
  12. NICORETTE [Concomitant]
     Active Substance: NICOTINE
  13. NICOTINE. [Concomitant]
     Active Substance: NICOTINE
  14. MULTIVITAMINS [Concomitant]
     Active Substance: VITAMINS
  15. PROMETRIUM [Concomitant]
     Active Substance: PROGESTERONE
  16. XYREM [Suspect]
     Active Substance: SODIUM OXYBATE
     Indication: FIBROMYALGIA
     Dosage: 4.5 G, BID
     Route: 048
     Dates: start: 200812, end: 201006
  17. HYDROCORTISONE. [Concomitant]
     Active Substance: HYDROCORTISONE
  18. QVAR [Concomitant]
     Active Substance: BECLOMETHASONE DIPROPIONATE
  19. ABILIFY [Concomitant]
     Active Substance: ARIPIPRAZOLE
  20. VITAMIN D2 [Concomitant]
     Active Substance: ERGOCALCIFEROL
  21. VOLTAREN [Concomitant]
     Active Substance: DICLOFENAC SODIUM
  22. GABAPENTIN. [Concomitant]
     Active Substance: GABAPENTIN
  23. CALCIUM/VITAMIN D [Concomitant]
     Active Substance: CALCIUM\VITAMIN D
  24. CYMBALTA [Concomitant]
     Active Substance: DULOXETINE HYDROCHLORIDE
  25. LAMICTAL [Concomitant]
     Active Substance: LAMOTRIGINE
  26. LIDODERM [Concomitant]
     Active Substance: LIDOCAINE
  27. SINGULAIR [Concomitant]
     Active Substance: MONTELUKAST SODIUM

REACTIONS (2)
  - Therapeutic response unexpected [Unknown]
  - Pre-existing condition improved [Unknown]
